FAERS Safety Report 6131374-1 (Version None)
Quarter: 2009Q1

REPORT INFORMATION
  Report Type: 
  Country: None (occurrence: None)
  Receive Date: 20090325
  Receipt Date: 20080722
  Transmission Date: 20090719
  Serious: Yes (Hospitalization)
  Sender: FDA-Public Use
  Company Number: US-BRISTOL-MYERS SQUIBB COMPANY-14166458

PATIENT
  Age: 64 Year
  Sex: Male

DRUGS (6)
  1. ERBITUX [Suspect]
     Indication: COLON CANCER METASTATIC
     Dosage: IST DOSE:400 MG/M2
     Route: 042
     Dates: start: 20080425, end: 20080425
  2. BENADRYL [Concomitant]
     Indication: PREMEDICATION
     Route: 042
     Dates: start: 20080425
  3. SODIUM CHLORIDE [Concomitant]
     Dates: start: 20080425
  4. SOLU-MEDROL [Concomitant]
     Indication: PREMEDICATION
     Route: 042
     Dates: start: 20080425
  5. AMLODIPINE [Concomitant]
  6. METOPROLOL TARTRATE [Concomitant]

REACTIONS (1)
  - INFUSION RELATED REACTION [None]
